FAERS Safety Report 8370384-0 (Version None)
Quarter: 2012Q2

REPORT INFORMATION
  Report Type: 
  Country: None (occurrence: None)
  Receive Date: 20120518
  Receipt Date: 20120507
  Transmission Date: 20120825
  Serious: Yes (Hospitalization)
  Sender: FDA-Public Use
  Company Number: US-JNJFOC-20120409945

PATIENT
  Sex: Male
  Weight: 105.9 kg

DRUGS (5)
  1. INFLIXIMAB, RECOMBINANT [Suspect]
     Indication: CROHN'S DISEASE
     Route: 042
  2. HUMIRA [Concomitant]
     Dates: start: 20120101
  3. LIDEX [Concomitant]
  4. DOXYCYCLINE [Concomitant]
  5. BENZOYL PEROXIDE [Concomitant]

REACTIONS (5)
  - DISEASE PROGRESSION [None]
  - HYPERSENSITIVITY [None]
  - THERAPEUTIC RESPONSE DECREASED [None]
  - HAEMOGLOBIN DECREASED [None]
  - CROHN'S DISEASE [None]
